FAERS Safety Report 7232438-1 (Version None)
Quarter: 2011Q1

REPORT INFORMATION
  Report Type: 
  Country: None (occurrence: None)
  Receive Date: 20110107
  Receipt Date: 20101225
  Transmission Date: 20110831
  Serious: Yes (Hospitalization)
  Sender: FDA-Public Use
  Company Number: 012519

PATIENT
  Age: 63 Year
  Sex: Male
  Weight: 84 kg

DRUGS (9)
  1. PLETAL [Suspect]
     Indication: INTERMITTENT CLAUDICATION
     Dosage: 100 MG, BID, ORAL
     Route: 048
     Dates: start: 20101019, end: 20101123
  2. INSULIN (INSULIN) [Concomitant]
  3. RAMIPRIL [Concomitant]
  4. NIFEDIPINE [Concomitant]
  5. ACARBOSE [Concomitant]
  6. METFORMIN HCL [Concomitant]
  7. PIRACETAM (PIRACETAM) [Concomitant]
  8. BETAXOLOL HYDROCHLORIDE (BETAXOLOL HYDROCHLORIDE) [Concomitant]
  9. ASPIRIN [Concomitant]

REACTIONS (1)
  - SOFT TISSUE INJURY [None]
